FAERS Safety Report 17295583 (Version 4)
Quarter: 2020Q2

REPORT INFORMATION
  Report Type: Spontaneous
  Country: US (occurrence: US)
  Receive Date: 20200121
  Receipt Date: 20200514
  Transmission Date: 20200713
  Serious: No
  Sender: FDA-Public Use
  Company Number: US-PFIZER INC-2020027384

PATIENT
  Age: 53 Year
  Sex: Female
  Weight: 68.93 kg

DRUGS (20)
  1. XELJANZ [Suspect]
     Active Substance: TOFACITINIB CITRATE
     Indication: RHEUMATOID ARTHRITIS
     Dosage: 5 MG, UNK
     Dates: start: 2019, end: 20200303
  2. IPRATROPIUM [Concomitant]
     Active Substance: IPRATROPIUM
     Indication: RHINORRHOEA
     Dosage: 2 DF, AS NEEDED,42 MCG/INH (0.06%) NASAL SPRAY) 2 SPRAY LNTRANASAL FOUR TIMES DAILY AS NEEDED
     Route: 045
  3. TOCILIZUMAB. [Concomitant]
     Active Substance: TOCILIZUMAB
     Dosage: UNK UNK, AS NEEDED,(ACTEMRA 162 MG/0.9 ML SUBCUTANEOUS SOLUTION); 162 MG SUBCUTANEOUS EVERY 2 WEEKS
     Route: 058
     Dates: start: 20200306
  4. ELDERBERRY [SAMBUCUS NIGRA] [Concomitant]
     Indication: ANTIVIRAL PROPHYLAXIS
     Dosage: UNK
     Dates: start: 20200310
  5. ALBUTEROL HFA [Concomitant]
     Active Substance: ALBUTEROL SULFATE
     Dosage: UNK, 4X/DAY,90 MCG/INH INHALATION AEROSOL WITH ADAPTER); 2 PUFF INHALATION FOUR TIMES DAILY
     Dates: start: 20200306
  6. LEVOTHYROXINE. [Concomitant]
     Active Substance: LEVOTHYROXINE
     Dosage: 100 UG, 1X/DAY
     Route: 048
     Dates: start: 20200307
  7. PROGESTERONE. [Concomitant]
     Active Substance: PROGESTERONE
     Dosage: 200 MG, 1X/DAY
     Route: 048
  8. WARFARIN [Concomitant]
     Active Substance: WARFARIN
     Dosage: 3 MG, UNK,TAKE 2MG 1 TABLET TUE,THURS,SAT,SUN TAKE 3MG 1.5 TABLET M-W-F DOSAGE WILL CHANGE PER INR R
  9. METHOTREXATE. [Concomitant]
     Active Substance: METHOTREXATE
     Dosage: 200 MG, UNK,25 MG 8 PILL ON FRIDAY
  10. METHOTREXATE. [Concomitant]
     Active Substance: METHOTREXATE
     Dosage: 160 MG, 1X/DAY,20 MG= 8 TABLET(S) ORAL EVERY WEEK
     Route: 048
     Dates: start: 20200309
  11. METHOTREXATE. [Concomitant]
     Active Substance: METHOTREXATE
     Dosage: 2.5 MG, UNK (2.5 MG 8 PILL ON FRIDAY)
  12. ELDERBERRY [SAMBUCUS NIGRA] [Concomitant]
     Indication: INFLUENZA IMMUNISATION
  13. XELJANZ [Suspect]
     Active Substance: TOFACITINIB CITRATE
     Dosage: 5 MG, 2X/DAY (TAKE 1 TABLET TWICE A DAY)
     Dates: start: 20200306, end: 202003
  14. ECHINACEA + VITAMINA C VITATECH [Concomitant]
     Dosage: UNK
  15. AMITRIPTYLINE [Concomitant]
     Active Substance: AMITRIPTYLINE
     Dosage: 50 MG, 1X/DAY,TAKE ONE TABLET BY MOUTH EVERY DAY AT BEDTIME
     Route: 048
     Dates: start: 20200306
  16. TRETINOIN. [Concomitant]
     Active Substance: TRETINOIN
     Indication: ACNE
     Dosage: UNK, DAILY,1 APPLICATION TOPICAL AT BEDTIME
     Route: 061
     Dates: start: 20200306
  17. WARFARIN [Concomitant]
     Active Substance: WARFARIN
     Dosage: 2 MG, UNK,TAKE 2MG 1 TABLET TUE,THURS,SAT,SUN TAKE 3MG 1.5 TABLET M-W-F DOSAGE WILL CHANGE PER INR R
     Dates: start: 20200306
  18. ASPIRIN [ACETYLSALICYLIC ACID] [Concomitant]
     Active Substance: ASPIRIN
     Dosage: 81 MG, 1X/DAY
     Dates: start: 20200307
  19. FOLIC ACID. [Concomitant]
     Active Substance: FOLIC ACID
     Dosage: 1 MG, 1X/DAY,1 TABLET(S) ORAL DAILY
     Route: 048
     Dates: start: 20200307
  20. VITAMIN A [COLECALCIFEROL;RETINOL] [Concomitant]
     Active Substance: CHOLECALCIFEROL\RETINOL
     Dosage: UNK
     Dates: start: 20200307

REACTIONS (2)
  - Weight increased [Unknown]
  - Drug ineffective [Unknown]

NARRATIVE: CASE EVENT DATE: 201910
